FAERS Safety Report 9888416 (Version 1)
Quarter: 2014Q1

REPORT INFORMATION
  Report Type: Spontaneous
  Country: US (occurrence: US)
  Receive Date: 20140211
  Receipt Date: 20140211
  Transmission Date: 20141002
  Serious: Yes (Other)
  Sender: FDA-Public Use
  Company Number: US-PFIZER INC-2014036626

PATIENT
  Age: 46 Year
  Sex: Female
  Weight: 90.7 kg

DRUGS (4)
  1. DILANTIN [Suspect]
     Indication: CONVULSION
     Dosage: 300 MG (THREE100MG CAPSULES) , 2X/DAY
     Route: 048
     Dates: end: 20100519
  2. METFORMIN [Concomitant]
     Indication: DIABETES MELLITUS
     Dosage: 1000 MG, UNK
  3. METOPROLOL [Concomitant]
     Indication: HYPERTENSION
     Dosage: UNK
  4. PHENOBARBITAL [Concomitant]
     Dosage: UNK

REACTIONS (1)
  - Convulsion [Unknown]
